FAERS Safety Report 8127767-3 (Version None)
Quarter: 2012Q1

REPORT INFORMATION
  Report Type: 
  Country: None (occurrence: None)
  Receive Date: 20120210
  Receipt Date: 20120127
  Transmission Date: 20120608
  Serious: Yes (Hospitalization, Other)
  Sender: FDA-Public Use
  Company Number: ES-JNJFOC-20111102156

PATIENT
  Sex: Female
  Weight: 80 kg

DRUGS (4)
  1. OMEPRAZOLE [Concomitant]
     Indication: ILL-DEFINED DISORDER
     Route: 048
  2. AMITRIPTYLINE HCL [Concomitant]
     Indication: ILL-DEFINED DISORDER
     Route: 048
  3. STELARA [Suspect]
     Indication: PUSTULAR PSORIASIS
     Route: 065
     Dates: start: 20100607, end: 20110818
  4. SITAGLIPTIN [Concomitant]
     Indication: ILL-DEFINED DISORDER
     Route: 048

REACTIONS (3)
  - PANCREATIC CARCINOMA METASTATIC [None]
  - PULMONARY EMBOLISM [None]
  - OFF LABEL USE [None]
